FAERS Safety Report 5070482-3 (Version None)
Quarter: 2006Q3

REPORT INFORMATION
  Report Type: 
  Country: None (occurrence: None)
  Receive Date: 20060804
  Receipt Date: 20060724
  Transmission Date: 20061208
  Serious: Yes (Hospitalization, Other)
  Sender: FDA-Public Use
  Company Number: DE-ABBOTT-06P-062-0338849-00

PATIENT
  Age: 41 Year
  Sex: Male

DRUGS (8)
  1. HUMIRA [Suspect]
     Indication: RHEUMATOID ARTHRITIS
     Route: 058
     Dates: start: 20030501, end: 20060101
  2. HUMIRA [Suspect]
     Route: 058
     Dates: start: 20060101, end: 20060314
  3. HUMIRA [Suspect]
     Route: 058
     Dates: start: 20060606
  4. LEFLUNOMIDE [Suspect]
     Indication: RHEUMATOID ARTHRITIS
     Route: 048
     Dates: start: 20051101, end: 20060101
  5. LEFLUNOMIDE [Suspect]
     Route: 048
     Dates: start: 20060101, end: 20060321
  6. LEFLUNOMIDE [Suspect]
     Route: 048
     Dates: start: 20060410
  7. THEOPHYLLINE [Concomitant]
     Indication: ASTHMA
     Route: 048
  8. FORMOTEROL [Concomitant]
     Indication: ASTHMA
     Route: 055

REACTIONS (2)
  - BURSITIS [None]
  - WOUND INFECTION STAPHYLOCOCCAL [None]
